FAERS Safety Report 13891582 (Version 1)
Quarter: 2017Q3

REPORT INFORMATION
  Report Type: Spontaneous
  Country: IT (occurrence: IT)
  Receive Date: 20170822
  Receipt Date: 20170822
  Transmission Date: 20171127
  Serious: Yes (Hospitalization, Other)
  Sender: FDA-Public Use
  Company Number: IT-MYLANLABS-2017M1051062

PATIENT

DRUGS (2)
  1. ACETYLSALICYLIC ACID [Interacting]
     Active Substance: ASPIRIN
     Indication: ACUTE CORONARY SYNDROME
     Dosage: UNK
  2. CLOPIDOGREL [Suspect]
     Active Substance: CLOPIDOGREL BISULFATE
     Indication: ACUTE CORONARY SYNDROME
     Dosage: UNK

REACTIONS (4)
  - Labelled drug-drug interaction medication error [Unknown]
  - Gastrointestinal haemorrhage [Unknown]
  - Drug administration error [Unknown]
  - Anaemia [Unknown]
